FAERS Safety Report 23151724 (Version 2)
Quarter: 2024Q4

REPORT INFORMATION
  Report Type: Spontaneous
  Country: US (occurrence: US)
  Receive Date: 20231107
  Receipt Date: 20241129
  Transmission Date: 20250114
  Serious: Yes (Other)
  Sender: MERCK
  Company Number: US-009507513-2311USA001248

PATIENT
  Sex: Female

DRUGS (1)
  1. KEYTRUDA [Suspect]
     Active Substance: PEMBROLIZUMAB
     Indication: Triple negative breast cancer
     Dosage: EVERY 3 WEEKS (Q3W)
     Route: 042
     Dates: start: 202210, end: 20231019

REACTIONS (14)
  - Duodenal ulcer [Not Recovered/Not Resolved]
  - Immune-mediated gastrointestinal disorder [Unknown]
  - Immune-mediated lung disease [Unknown]
  - Transfusion [Unknown]
  - Ill-defined disorder [Not Recovered/Not Resolved]
  - Fatigue [Not Recovered/Not Resolved]
  - Diarrhoea [Not Recovered/Not Resolved]
  - Poor quality sleep [Unknown]
  - Mouth ulceration [Unknown]
  - Vaginal lesion [Unknown]
  - Rectal lesion [Unknown]
  - Gastrointestinal disorder [Unknown]
  - Viral infection [Unknown]
  - Immune system disorder [Unknown]

NARRATIVE: CASE EVENT DATE: 20220101
